FAERS Safety Report 8789664 (Version 1)
Quarter: 2012Q4

REPORT INFORMATION
  Report Type: Spontaneous
  Country: CN (occurrence: None)
  Receive Date: 20120906
  Receipt Date: 20120906
  Transmission Date: 20130627
  Serious: Yes (Other)
  Sender: FDA-Public Use
  Company Number: DSA_59198_2012

PATIENT

DRUGS (8)
  1. FLUOROURACIL (FLUOROURACIL) [Suspect]
     Indication: GASTRIC CANCER
     Dosage: by micro-pump for 22 hour on days 1-5; cycles repeated every 21 days
     Route: 042
  2. CALCIUM FOLINATE [Suspect]
     Indication: GASTRIC CANCER
     Dosage: mg/m2/day in normal saline for 2 hours on days 1-5; cycles repeated every 21 days
     Route: 042
  3. DOCETAXEL [Suspect]
     Indication: GASTRIC CANCER
     Dosage: in normal saline by 1 hour on day 1; cycles repeated every 21 days
     Route: 042
  4. CISPLATIN [Suspect]
     Indication: GASTRIC CANCER
     Dosage: in normal saline on days 1-3 1 hour hydration; cycles repeated every 21 days
  5. NORMAL SALINE [Concomitant]
  6. DEXAMETHASONE [Concomitant]
  7. PHENERGAN [Concomitant]
  8. RANITIDINE [Concomitant]

REACTIONS (2)
  - Nausea [None]
  - Vomiting [None]
